FAERS Safety Report 5062807-X (Version None)
Quarter: 2006Q3

REPORT INFORMATION
  Report Type: 
  Country: None (occurrence: None)
  Receive Date: 20060724
  Receipt Date: 20060710
  Transmission Date: 20061208
  Serious: Yes (Other)
  Sender: FDA-Public Use
  Company Number: 2006083659

PATIENT
  Age: 62 Year
  Sex: Female

DRUGS (4)
  1. LIPITOR [Suspect]
     Indication: HYPERCHOLESTEROLAEMIA
     Dosage: 10 MG (10 MG, 1 IN 1 D), ORAL
     Route: 048
     Dates: start: 19960101
  2. TOTELLE (ESTRADIOL, TRIMEGESTONE) [Suspect]
     Indication: DRUG USE FOR UNKNOWN INDICATION
     Dosage: (1 IN 1 D), ORAL
     Route: 048
  3. DRUG (DRUG) [Concomitant]
  4. ASPIRIN [Concomitant]

REACTIONS (16)
  - ACCIDENT [None]
  - BLOOD CHOLESTEROL INCREASED [None]
  - BLOOD CREATINE PHOSPHOKINASE INCREASED [None]
  - BLOOD TRIGLYCERIDES INCREASED [None]
  - FALL [None]
  - GASTRIC DISORDER [None]
  - HAEMORRHAGE [None]
  - HAEMORRHOIDS [None]
  - HAIR DISORDER [None]
  - HYPERSENSITIVITY [None]
  - MYALGIA [None]
  - PAIN IN EXTREMITY [None]
  - PHARYNGEAL OEDEMA [None]
  - PRURITUS [None]
  - VULVAL DISORDER [None]
  - VULVAL ERYTHEMA [None]
